FAERS Safety Report 9419302 (Version 1)
Quarter: 2013Q3

REPORT INFORMATION
  Report Type: Spontaneous
  Country: US (occurrence: US)
  Receive Date: 20130725
  Receipt Date: 20130725
  Transmission Date: 20140515
  Serious: No
  Sender: FDA-Public Use
  Company Number: US-GLAXOSMITHKLINE-A1005761A

PATIENT
  Age: 20 Year
  Sex: Female

DRUGS (3)
  1. LAMICTAL XR [Suspect]
     Indication: EPILEPSY
     Dosage: 300MG PER DAY
     Route: 065
     Dates: start: 20090618
  2. PRENATAL VITAMINS [Concomitant]
  3. LAMICTAL [Concomitant]
     Indication: EPILEPSY
     Route: 065

REACTIONS (1)
  - Exposure during pregnancy [Unknown]
